FAERS Safety Report 18947037 (Version 2)
Quarter: 2021Q1

REPORT INFORMATION
  Report Type: Report from Study
  Country: JP (occurrence: JP)
  Receive Date: 20210226
  Receipt Date: 20210330
  Transmission Date: 20210420
  Serious: Yes (Hospitalization)
  Sender: FDA-Public Use
  Company Number: JP-DSJP-DSJ-2020-138615AA

PATIENT
  Age: 69 Year
  Sex: Female
  Weight: 54 kg

DRUGS (4)
  1. ZOMETA [Concomitant]
     Active Substance: ZOLEDRONIC ACID
     Dosage: UNK
     Route: 065
     Dates: start: 20190131, end: 20200507
  2. ENHERTU [Suspect]
     Active Substance: FAM-TRASTUZUMAB DERUXTECAN-NXKI
     Indication: HER2 POSITIVE BREAST CANCER
     Dosage: 5.4 MG/KG, ONCE EVERY 3 WK
     Route: 041
     Dates: start: 20201030, end: 20201030
  3. ENHERTU [Suspect]
     Active Substance: FAM-TRASTUZUMAB DERUXTECAN-NXKI
     Dosage: 5.4 MG/KG, ONCE EVERY 3 WK
     Route: 041
     Dates: start: 20201124, end: 20201124
  4. RANMARK [Concomitant]
     Active Substance: DENOSUMAB
     Dosage: UNK
     Route: 065
     Dates: start: 20200528, end: 20200917

REACTIONS (3)
  - Interstitial lung disease [Recovering/Resolving]
  - Pleural effusion [Unknown]
  - Malignant pleural effusion [Unknown]

NARRATIVE: CASE EVENT DATE: 20201126
